FAERS Safety Report 26099944 (Version 1)
Quarter: 2025Q4

REPORT INFORMATION
  Report Type: Spontaneous
  Country: US (occurrence: US)
  Receive Date: 20251128
  Receipt Date: 20251128
  Transmission Date: 20260118
  Serious: No
  Sender: ELI LILLY AND COMPANY
  Company Number: US-ELI_LILLY_AND_COMPANY-US202511028364

PATIENT
  Age: 76 Year
  Sex: Female

DRUGS (1)
  1. ZEPBOUND [Suspect]
     Active Substance: TIRZEPATIDE
     Indication: Weight control
     Dosage: 2.5 MG, UNKNOWN
     Route: 065
     Dates: start: 20250906

REACTIONS (10)
  - Onychoclasis [Unknown]
  - Regurgitation [Unknown]
  - Insomnia [Unknown]
  - Night sweats [Unknown]
  - Arthralgia [Unknown]
  - Constipation [Unknown]
  - Nausea [Unknown]
  - Alopecia [Unknown]
  - Eructation [Unknown]
  - Fatigue [Unknown]
